FAERS Safety Report 5070511-7 (Version None)
Quarter: 2006Q3

REPORT INFORMATION
  Report Type: 
  Country: None (occurrence: None)
  Receive Date: 20060804
  Receipt Date: 20060801
  Transmission Date: 20061208
  Serious: Yes (Life-Threatening, Hospitalization)
  Sender: FDA-Public Use
  Company Number: 2006UW15511

PATIENT
  Age: 74 Year
  Sex: Male

DRUGS (3)
  1. ZOLADEX [Suspect]
     Route: 058
     Dates: start: 20060630
  2. MUSHROOM CAPSULES [Concomitant]
  3. HERBALS [Concomitant]

REACTIONS (2)
  - CONTUSION [None]
  - TRANSFUSION [None]
